FAERS Safety Report 8165608-9 (Version None)
Quarter: 2012Q1

REPORT INFORMATION
  Report Type: 
  Country: None (occurrence: None)
  Receive Date: 20120223
  Receipt Date: 20120223
  Transmission Date: 20120608
  Serious: No
  Sender: FDA-Public Use
  Company Number: None

PATIENT
  Age: 78 Year
  Sex: Female
  Weight: 58.9676 kg

DRUGS (1)
  1. HYDROCHLOROTHIAZIDE [Suspect]
     Indication: BLOOD PRESSURE
     Dosage: 50 MG 1 DAY 2-3 DAYS

REACTIONS (5)
  - HALLUCINATION, VISUAL [None]
  - ORAL CONTRACEPTION [None]
  - DIZZINESS [None]
  - HYPOAESTHESIA [None]
  - SYNCOPE [None]
